FAERS Safety Report 7216145-7 (Version None)
Quarter: 2011Q1

REPORT INFORMATION
  Report Type: 
  Country: None (occurrence: None)
  Receive Date: 20110107
  Receipt Date: 20101220
  Transmission Date: 20110831
  Serious: No
  Sender: FDA-Public Use
  Company Number: US-B.I. PHARMACEUTICALS,INC./RIDGEFIELD-2010-BP-15082BP

PATIENT
  Sex: Female

DRUGS (15)
  1. PULMICORT [Concomitant]
     Indication: CHRONIC OBSTRUCTIVE PULMONARY DISEASE
  2. DUONEB [Concomitant]
     Indication: CHRONIC OBSTRUCTIVE PULMONARY DISEASE
  3. KLONOPIN [Concomitant]
     Indication: INSOMNIA
  4. EYE QHS [Concomitant]
     Indication: GLAUCOMA
  5. LASIX [Concomitant]
     Indication: HYPERTENSION
  6. PREVACID [Concomitant]
     Indication: GASTROOESOPHAGEAL REFLUX DISEASE
  7. TEGRETOL [Concomitant]
     Indication: CONVULSION
  8. PREDNISONE [Concomitant]
     Indication: CHRONIC OBSTRUCTIVE PULMONARY DISEASE
  9. MINOXIDIL [Concomitant]
     Indication: HYPERTENSION
  10. SYNTHROID [Concomitant]
     Indication: HYPOTHYROIDISM
  11. SPIRIVA [Suspect]
     Indication: CHRONIC OBSTRUCTIVE PULMONARY DISEASE
     Dosage: 18 MCG
     Route: 055
     Dates: start: 20050101
  12. OXYGEN AT NIGHT [Concomitant]
     Indication: CHRONIC OBSTRUCTIVE PULMONARY DISEASE
  13. HYDROCHLOROTHIAZIDE [Concomitant]
     Indication: HYPERTENSION
  14. CLONIDINE [Concomitant]
     Indication: HYPERTENSION
  15. ZOCOR [Concomitant]
     Indication: BLOOD CHOLESTEROL INCREASED

REACTIONS (3)
  - COUGH [None]
  - DYSPNOEA [None]
  - SLEEP DISORDER [None]
